FAERS Safety Report 7539974-9 (Version None)
Quarter: 2011Q2

REPORT INFORMATION
  Report Type: 
  Country: None (occurrence: None)
  Receive Date: 20110610
  Receipt Date: 20110609
  Transmission Date: 20111010
  Serious: Yes (Death, Other)
  Sender: FDA-Public Use
  Company Number: US-SANOFI-AVENTIS-2011SA032260

PATIENT
  Age: 64 Year
  Sex: Male

DRUGS (10)
  1. FLUOROURACIL [Suspect]
     Route: 042
     Dates: start: 20110503, end: 20110504
  2. OXALIPLATIN [Suspect]
     Route: 042
     Dates: start: 20110331, end: 20110331
  3. ENOXAPARIN [Concomitant]
  4. DILAUDID [Concomitant]
  5. OXALIPLATIN [Suspect]
     Route: 042
     Dates: start: 20110504, end: 20110504
  6. FLUOROURACIL [Suspect]
     Route: 042
     Dates: start: 20110331, end: 20110401
  7. LEUCOVORIN CALCIUM [Suspect]
     Route: 042
     Dates: start: 20110504, end: 20110504
  8. INVESTIGATIONAL DRUG [Suspect]
     Route: 048
     Dates: start: 20110331, end: 20110506
  9. PLAVIX [Concomitant]
  10. LEUCOVORIN CALCIUM [Suspect]
     Route: 042
     Dates: start: 20110331, end: 20110331

REACTIONS (2)
  - EMBOLISM [None]
  - DEATH [None]
